FAERS Safety Report 4508822-3 (Version None)
Quarter: 2004Q4

REPORT INFORMATION
  Report Type: 
  Country: None (occurrence: None)
  Receive Date: 20041123
  Receipt Date: 20040901
  Transmission Date: 20050328
  Serious: No
  Sender: FDA-Public Use
  Company Number: US-GLAXOSMITHKLINE-A0524243A

PATIENT
  Age: 77 Year
  Sex: Female

DRUGS (7)
  1. WELLBUTRIN [Suspect]
     Indication: DEPRESSION
     Dosage: 150MG TWICE PER DAY
     Route: 048
     Dates: start: 20040707
  2. TYLENOL W/ CODEINE NO. 3 [Concomitant]
  3. PREVACID [Concomitant]
  4. HYDRALAZINE [Concomitant]
  5. LOTENSIN [Concomitant]
  6. NEURONTIN [Concomitant]
  7. ISOSORBIDE [Concomitant]

REACTIONS (1)
  - ALOPECIA [None]
